FAERS Safety Report 13759470 (Version 2)
Quarter: 2020Q1

REPORT INFORMATION
  Report Type: Spontaneous
  Country: DE (occurrence: DE)
  Receive Date: 20170717
  Receipt Date: 20200218
  Transmission Date: 20200409
  Serious: Yes (Other)
  Sender: FDA-Public Use
  Company Number: DE-BAUSCH-BL-2017-021033

PATIENT
  Age: 39 Year
  Sex: Female
  Weight: 67 kg

DRUGS (4)
  1. ELIDEL [Suspect]
     Active Substance: PIMECROLIMUS
     Dosage: DAILY DOSE: 2 DF DOSAGE?CUMULATIVE DOSE: 306 DF DOSAGE FORM
     Route: 061
     Dates: start: 20170524, end: 20170602
  2. ELIDEL [Suspect]
     Active Substance: PIMECROLIMUS
     Indication: DERMATITIS ATOPIC
     Dosage: DAILY DOSE: 2 DF DOSAGE?CUMULATIVE DOSE: 306 DF DOSAGE FORM
     Route: 061
     Dates: start: 20170602, end: 20170618
  3. PROTOPIC [Suspect]
     Active Substance: TACROLIMUS
     Indication: DERMATITIS ATOPIC
     Dosage: DAILY DOSE: 2 DF DOSAGE FORM EVERY DAYS?CUMULATIVE DOSE: 306 DF DOSAGE FORM
     Route: 061
     Dates: start: 20170602, end: 20170618
  4. PROTOPIC [Suspect]
     Active Substance: TACROLIMUS
     Dosage: DAILY DOSE: 2 DF DOSAGE FORM EVERY DAYS?CUMULATIVE DOSE: 306 DF DOSAGE FORM
     Route: 061
     Dates: start: 20170524, end: 20170602

REACTIONS (1)
  - Kaposi^s varicelliform eruption [Recovered/Resolved]

NARRATIVE: CASE EVENT DATE: 20170618
